FAERS Safety Report 11977230 (Version 1)
Quarter: 2016Q1

REPORT INFORMATION
  Report Type: Spontaneous
  Country: US (occurrence: None)
  Receive Date: 20160128
  Receipt Date: 20160128
  Transmission Date: 20160526
  Serious: Yes (Disabling)
  Sender: FDA-Public Use
  Company Number: None

PATIENT
  Age: 37 Year
  Sex: Female
  Weight: 71.67 kg

DRUGS (2)
  1. CIPROFLOXACIN. [Suspect]
     Active Substance: CIPROFLOXACIN
     Indication: URINARY TRACT INFECTION
     Dosage: 1 PILL TWICE DAILY TAKEN BY MOUTH
     Route: 048
     Dates: start: 20141106, end: 20141110
  2. NUVARING [Concomitant]
     Active Substance: ETHINYL ESTRADIOL\ETONOGESTREL

REACTIONS (9)
  - Activities of daily living impaired [None]
  - Abasia [None]
  - Inflammation [None]
  - Arthralgia [None]
  - Pain in extremity [None]
  - Blepharospasm [None]
  - Tendon disorder [None]
  - Swelling [None]
  - Pain [None]

NARRATIVE: CASE EVENT DATE: 20141106
